FAERS Safety Report 12184903 (Version 1)
Quarter: 2016Q1

REPORT INFORMATION
  Report Type: Spontaneous
  Country: FR (occurrence: FR)
  Receive Date: 20160316
  Receipt Date: 20160316
  Transmission Date: 20160526
  Serious: Yes (Hospitalization, Congenital Anomaly)
  Sender: FDA-Public Use
  Company Number: FR-TEVA-642077ISR

PATIENT
  Age: 1 Day
  Sex: Female

DRUGS (5)
  1. DOLIPRANE [Suspect]
     Active Substance: ACETAMINOPHEN
     Route: 064
  2. SPASFON [Suspect]
     Active Substance: PHLOROGLUCINOL
     Route: 064
  3. EFFEXOR [Suspect]
     Active Substance: VENLAFAXINE HYDROCHLORIDE
     Route: 064
  4. MAGNE B6 [Suspect]
     Active Substance: MAGNESIUM\PYRIDOXINE
     Route: 064
  5. ALPRAZOLAM. [Suspect]
     Active Substance: ALPRAZOLAM
     Route: 064

REACTIONS (1)
  - Cystic lymphangioma [Not Recovered/Not Resolved]

NARRATIVE: CASE EVENT DATE: 20120907
